FAERS Safety Report 7481926-1 (Version None)
Quarter: 2011Q2

REPORT INFORMATION
  Report Type: 
  Country: None (occurrence: None)
  Receive Date: 20110516
  Receipt Date: 20110324
  Transmission Date: 20111010
  Serious: Yes (Hospitalization, Other)
  Sender: FDA-Public Use
  Company Number: PHHY2011TW24500

PATIENT
  Sex: Male
  Weight: 83 kg

DRUGS (1)
  1. IMATINIB MESYLATE [Suspect]
     Indication: CHRONIC MYELOID LEUKAEMIA
     Dosage: UNK
     Route: 048
     Dates: start: 20110110, end: 20110225

REACTIONS (13)
  - NEOPLASM MALIGNANT [None]
  - CHEST PAIN [None]
  - RALES [None]
  - PRODUCTIVE COUGH [None]
  - MYALGIA [None]
  - SMALL CELL LUNG CANCER STAGE UNSPECIFIED [None]
  - HEPATIC NEOPLASM [None]
  - METASTASES TO BONE [None]
  - PNEUMONIA [None]
  - PYREXIA [None]
  - COUGH [None]
  - DYSPNOEA [None]
  - DRUG INTOLERANCE [None]
